FAERS Safety Report 21436149 (Version 1)
Quarter: 2022Q4

REPORT INFORMATION
  Report Type: Spontaneous
  Country: RS (occurrence: RS)
  Receive Date: 20221010
  Receipt Date: 20221010
  Transmission Date: 20230113
  Serious: Yes (Other)
  Sender: FDA-Public Use
  Company Number: RS-NOVARTISPH-NVSC2022RS224165

PATIENT
  Age: 38 Year
  Sex: Female

DRUGS (1)
  1. CYCLOSPORINE [Suspect]
     Active Substance: CYCLOSPORINE
     Indication: Still^s disease
     Dosage: UNK
     Route: 065

REACTIONS (5)
  - Still^s disease [Unknown]
  - Condition aggravated [Unknown]
  - Gingival hypertrophy [Unknown]
  - Hypertension [Unknown]
  - Product use in unapproved indication [Unknown]
